FAERS Safety Report 7443688-3 (Version None)
Quarter: 2011Q2

REPORT INFORMATION
  Report Type: 
  Country: None (occurrence: None)
  Receive Date: 20110428
  Receipt Date: 20110426
  Transmission Date: 20111010
  Serious: Yes (Hospitalization)
  Sender: FDA-Public Use
  Company Number: JP-PFIZER INC-2011089997

PATIENT
  Age: 58 Year
  Sex: Female

DRUGS (2)
  1. LYRICA [Suspect]
     Indication: POST HERPETIC NEURALGIA
     Dosage: 75 MG, DAILY
     Route: 048
     Dates: start: 20110425, end: 20110425
  2. ZOVIRAX [Concomitant]
     Indication: HERPES ZOSTER
     Dosage: UNK
     Route: 041
     Dates: start: 20110425, end: 20110425

REACTIONS (2)
  - COLD SWEAT [None]
  - DIZZINESS [None]
